FAERS Safety Report 16166046 (Version 1)
Quarter: 2019Q2

REPORT INFORMATION
  Report Type: Spontaneous
  Country: FR (occurrence: FR)
  Receive Date: 20190406
  Receipt Date: 20190406
  Transmission Date: 20190711
  Serious: Yes (Death)
  Sender: FDA-Public Use
  Company Number: FR-ACCORD-118089

PATIENT
  Age: 57 Year
  Sex: Female
  Weight: 48 kg

DRUGS (3)
  1. FLUOROURACIL ACCORD [Suspect]
     Active Substance: FLUOROURACIL
     Indication: NEOPLASM MALIGNANT
     Dosage: 50 MG/ML,DATE OF LAST ADMINISTRATION: 14-DEC-2018
     Route: 042
     Dates: start: 20181214
  2. PACLITAXEL/PACLITAXEL LIPOSOME [Suspect]
     Active Substance: PACLITAXEL
     Indication: NEOPLASM MALIGNANT
     Dosage: DATE AND TIME OF LAST ADMINISTRATION: 14-DEC-2018
     Route: 042
     Dates: start: 20181214
  3. CISPLATIN MYLAN [Suspect]
     Active Substance: CISPLATIN
     Indication: NEOPLASM MALIGNANT
     Dosage: DATE OF LAST ADMINISTRATION: 14-DEC-2018
     Route: 042
     Dates: start: 20181214

REACTIONS (4)
  - Bone marrow failure [Fatal]
  - Distal intestinal obstruction syndrome [Fatal]
  - Septic shock [Fatal]
  - Ascites [Fatal]

NARRATIVE: CASE EVENT DATE: 20181220
